FAERS Safety Report 21424296 (Version 1)
Quarter: 2022Q4

REPORT INFORMATION
  Report Type: Spontaneous
  Country: CA (occurrence: CA)
  Receive Date: 20221007
  Receipt Date: 20221007
  Transmission Date: 20230113
  Serious: Yes (Other)
  Sender: FDA-Public Use
  Company Number: CA-PFIZER INC-PV202200077112

PATIENT
  Age: 61 Year
  Sex: Male
  Weight: 79.365 kg

DRUGS (2)
  1. PAXLOVID [Suspect]
     Active Substance: NIRMATRELVIR\RITONAVIR
     Indication: Asthma
     Dosage: UNK, 2X/DAY
     Dates: start: 20221001
  2. ELIDEL [Concomitant]
     Active Substance: PIMECROLIMUS
     Dosage: UNK

REACTIONS (4)
  - Loss of consciousness [Recovered/Resolved]
  - Dizziness [Not Recovered/Not Resolved]
  - Vertigo [Not Recovered/Not Resolved]
  - Off label use [Unknown]

NARRATIVE: CASE EVENT DATE: 20221001
